FAERS Safety Report 24097591 (Version 2)
Quarter: 2024Q4

REPORT INFORMATION
  Report Type: Spontaneous
  Country: FR (occurrence: FR)
  Receive Date: 20240716
  Receipt Date: 20241008
  Transmission Date: 20250115
  Serious: Yes (Other)
  Sender: ROCHE
  Company Number: FR-ROCHE-10000027105

PATIENT
  Age: 78 Year
  Sex: Female

DRUGS (1)
  1. VABYSMO [Suspect]
     Active Substance: FARICIMAB-SVOA
     Indication: Neovascular age-related macular degeneration
     Route: 050
     Dates: start: 20240429

REACTIONS (2)
  - Iridocyclitis [Not Recovered/Not Resolved]
  - Keratic precipitates [Not Recovered/Not Resolved]

NARRATIVE: CASE EVENT DATE: 20240626
